FAERS Safety Report 9617137 (Version 4)
Quarter: 2013Q4

REPORT INFORMATION
  Report Type: Spontaneous
  Country: IT (occurrence: IT)
  Receive Date: 20131011
  Receipt Date: 20131216
  Transmission Date: 20140711
  Serious: Yes (Hospitalization)
  Sender: FDA-Public Use
  Company Number: IT-PFIZER INC-2013289779

PATIENT
  Age: 40 Year
  Sex: Male

DRUGS (3)
  1. XANAX [Suspect]
     Indication: ANXIETY
     Dosage: UNK
     Route: 048
     Dates: start: 2013, end: 2013
  2. XANAX [Suspect]
     Dosage: 7.5 MG, TOTAL
     Route: 048
     Dates: start: 20130809, end: 20130809
  3. VALIUM [Suspect]
     Dosage: 20 DROPS, TOTAL
     Route: 048
     Dates: start: 20130809, end: 20130809

REACTIONS (3)
  - Intentional self-injury [Recovered/Resolved]
  - Drug abuse [Recovered/Resolved]
  - Somnolence [Recovered/Resolved]
